FAERS Safety Report 13158764 (Version 1)
Quarter: 2017Q1

REPORT INFORMATION
  Report Type: Spontaneous
  Country: SI (occurrence: SI)
  Receive Date: 20170127
  Receipt Date: 20170127
  Transmission Date: 20170428
  Serious: Yes (Hospitalization)
  Sender: FDA-Public Use
  Company Number: SI-TEVA-732750ISR

PATIENT
  Age: 72 Year
  Sex: Male

DRUGS (6)
  1. CLOPIDOGREL [Suspect]
     Active Substance: CLOPIDOGREL BISULFATE
     Indication: ANTIPLATELET THERAPY
     Dosage: 75 MG
     Route: 065
  2. HEPARIN [Suspect]
     Active Substance: HEPARIN SODIUM
     Dosage: 15000 U
     Route: 050
  3. NOREPINEPHRINE [Concomitant]
     Active Substance: NOREPINEPHRINE\NOREPINEPHRINE BITARTRATE
     Indication: HAEMODYNAMIC INSTABILITY
     Route: 065
  4. HEPARIN [Suspect]
     Active Substance: HEPARIN SODIUM
     Indication: DIALYSIS
     Dosage: 5000 U; CHANGED TO 15000U
     Route: 065
  5. ASPIRIN. [Suspect]
     Active Substance: ASPIRIN
     Indication: ANTIPLATELET THERAPY
     Dosage: 100 MG
     Route: 065
  6. DOBUTAMINE [Concomitant]
     Active Substance: DOBUTAMINE\DOBUTAMINE HYDROCHLORIDE
     Indication: HAEMODYNAMIC INSTABILITY
     Route: 065

REACTIONS (3)
  - Respiratory failure [Unknown]
  - Pulmonary haematoma [Recovered/Resolved]
  - Lung infection [Unknown]
